FAERS Safety Report 7693094-1 (Version None)
Quarter: 2011Q3

REPORT INFORMATION
  Report Type: 
  Country: None (occurrence: None)
  Receive Date: 20110819
  Receipt Date: 20110816
  Transmission Date: 20111222
  Serious: No
  Sender: FDA-Public Use
  Company Number: US-BAYER-2011-059305

PATIENT
  Age: 35 Year
  Sex: Female

DRUGS (2)
  1. BETASERON [Suspect]
     Indication: RELAPSING-REMITTING MULTIPLE SCLEROSIS
     Dosage: 8 MIU, QOD
     Route: 058
     Dates: start: 20110705
  2. BETASERON [Suspect]
     Dosage: 6 MIU, QOD
     Route: 058

REACTIONS (6)
  - MALAISE [None]
  - PRURITUS [None]
  - ACNE [None]
  - PAIN [None]
  - RASH PUSTULAR [None]
  - FATIGUE [None]
